FAERS Safety Report 7393778-9 (Version None)
Quarter: 2011Q2

REPORT INFORMATION
  Report Type: 
  Country: None (occurrence: None)
  Receive Date: 20110405
  Receipt Date: 20110324
  Transmission Date: 20111010
  Serious: Yes (Other)
  Sender: FDA-Public Use
  Company Number: US-JNJFOC-20110303073

PATIENT
  Sex: Female
  Weight: 49.9 kg

DRUGS (8)
  1. DIAZEPAM [Concomitant]
     Indication: PANIC ATTACK
     Dosage: AS NEEDED
     Route: 048
  2. DURAGESIC-50 [Suspect]
     Indication: PRODUCT USED FOR UNKNOWN INDICATION
     Route: 062
  3. SYMBYAX [Concomitant]
     Indication: DEPRESSION
     Dosage: 6-50 MG/DAY
     Route: 048
  4. PHENERGAN HCL [Concomitant]
     Indication: ABDOMINAL DISCOMFORT
     Dosage: AS NEEDED
     Route: 048
  5. DURAGESIC-50 [Suspect]
     Route: 062
  6. FENTANYL-100 [Suspect]
     Indication: PAIN
     Route: 062
  7. FENTANYL-100 [Suspect]
     Route: 062
  8. DURAGESIC-50 [Suspect]
     Indication: PAIN
     Route: 062

REACTIONS (11)
  - VOMITING [None]
  - WEIGHT DECREASED [None]
  - PAIN [None]
  - DRUG INEFFECTIVE [None]
  - PRODUCT FORMULATION ISSUE [None]
  - FEELING ABNORMAL [None]
  - WITHDRAWAL SYNDROME [None]
  - BEDRIDDEN [None]
  - PELVIC PAIN [None]
  - FALL [None]
  - INSOMNIA [None]
